FAERS Safety Report 6156402-9 (Version None)
Quarter: 2009Q2

REPORT INFORMATION
  Report Type: 
  Country: None (occurrence: None)
  Receive Date: 20090410
  Receipt Date: 20090410
  Transmission Date: 20091009
  Serious: Yes (Other)
  Sender: FDA-Public Use
  Company Number: None

PATIENT
  Sex: Male
  Weight: 83.9154 kg

DRUGS (1)
  1. CARVEDILOL [Suspect]
     Indication: CARDIAC FAILURE CONGESTIVE
     Dosage: ONE TABLET 2 TIMES A DAY
     Dates: start: 20090209, end: 20090409

REACTIONS (10)
  - ASTHENIA [None]
  - BLOOD URINE PRESENT [None]
  - CARDIAC PACEMAKER INSERTION [None]
  - DIZZINESS [None]
  - DYSPNOEA [None]
  - FALL [None]
  - MALAISE [None]
  - QUALITY OF LIFE DECREASED [None]
  - THROMBOSIS [None]
  - VISION BLURRED [None]
